FAERS Safety Report 5847885-X (Version None)
Quarter: 2008Q3

REPORT INFORMATION
  Report Type: 
  Country: None (occurrence: None)
  Receive Date: 20080814
  Receipt Date: 20080730
  Transmission Date: 20090109
  Serious: Yes (Disabling)
  Sender: FDA-Public Use
  Company Number: 2008S1013585

PATIENT
  Age: 66 Year
  Sex: Male

DRUGS (10)
  1. MIRTAZAPINE [Suspect]
     Indication: DEPRESSION
     Dosage: 30 MG;
     Dates: start: 20061106, end: 20080201
  2. ESCITALOPRAM [Suspect]
     Indication: DEPRESSION
     Dosage: 10 MG; ; ORAL
     Route: 048
     Dates: start: 20061101, end: 20070401
  3. ESCITALOPRAM [Suspect]
     Indication: DEPRESSION
     Dosage: 10 MG; ; ORAL
     Route: 048
     Dates: start: 20060901, end: 20070701
  4. ESCITALOPRAM [Suspect]
     Indication: DEPRESSION
     Dosage: 10 MG; ; ORAL
     Route: 048
     Dates: start: 20070501, end: 20070821
  5. AMIAS [Concomitant]
  6. BENDROFLUAZIDE [Concomitant]
  7. CARBOCISTEINE [Concomitant]
  8. DOXYCYCLINE [Concomitant]
  9. FLOXACILLIN SODIUM [Concomitant]
  10. LANSOPRAZOLE [Concomitant]

REACTIONS (8)
  - ABNORMAL BEHAVIOUR [None]
  - AGGRESSION [None]
  - DIARRHOEA [None]
  - DRUG INTERACTION [None]
  - MANIA [None]
  - MOOD SWINGS [None]
  - SOCIAL PROBLEM [None]
  - VISUAL IMPAIRMENT [None]
